FAERS Safety Report 7561878-6 (Version None)
Quarter: 2011Q2

REPORT INFORMATION
  Report Type: 
  Country: None (occurrence: None)
  Receive Date: 20110621
  Receipt Date: 20110608
  Transmission Date: 20111010
  Serious: Yes (Other)
  Sender: FDA-Public Use
  Company Number: PHHY2011JP15851

PATIENT
  Age: 24 Year
  Sex: Female
  Weight: 47 kg

DRUGS (3)
  1. MEDROL [Concomitant]
     Indication: RENAL TRANSPLANT
     Dosage: 8 MG
  2. IMURAN [Concomitant]
     Indication: RENAL TRANSPLANT
     Dosage: 50 MG
  3. SANDIMMUNE [Suspect]
     Indication: RENAL TRANSPLANT
     Dosage: 300 MG DAILY

REACTIONS (3)
  - RENAL IMPAIRMENT [None]
  - DRUG EXPOSURE DURING PREGNANCY [None]
  - KIDNEY TRANSPLANT REJECTION [None]
